FAERS Safety Report 9629952 (Version 2)
Quarter: 2014Q2

REPORT INFORMATION
  Report Type: Spontaneous
  Country: IT (occurrence: IT)
  Receive Date: 20131017
  Receipt Date: 20140430
  Transmission Date: 20141212
  Serious: Yes (Other)
  Sender: FDA-Public Use
  Company Number: IT-WATSON-2013-18718

PATIENT
  Age: 47 Year
  Sex: Male

DRUGS (4)
  1. LORAZEPAM [Suspect]
     Indication: DRUG ABUSE
     Dosage: 40 MG, SINGLE
     Route: 048
     Dates: start: 20130925, end: 20130925
  2. TRITTICO [Suspect]
     Indication: DRUG ABUSE
     Dosage: 750 MG, DAILY
     Route: 048
     Dates: start: 20130925, end: 20130925
  3. TRITTICO [Suspect]
     Dosage: 750 MG, SINGLE
     Dates: start: 20130925, end: 20130925
  4. VATRAN [Suspect]
     Indication: DRUG ABUSE
     Dosage: 50 MG, SINGLE
     Route: 048
     Dates: start: 20130925, end: 20130925

REACTIONS (3)
  - Sluggishness [Recovering/Resolving]
  - Sopor [Recovering/Resolving]
  - Drug abuse [Recovering/Resolving]
